FAERS Safety Report 10249022 (Version 3)
Quarter: 2014Q2

REPORT INFORMATION
  Report Type: Spontaneous
  Country: IT (occurrence: IT)
  Receive Date: 20140620
  Receipt Date: 20140624
  Transmission Date: 20141212
  Serious: Yes (Hospitalization)
  Sender: FDA-Public Use
  Company Number: IT-TEVA-488117ISR

PATIENT
  Age: 61 Year
  Sex: Male

DRUGS (8)
  1. METFORMIN [Suspect]
     Indication: DRUG ABUSE
     Dosage: 3000 MILLIGRAM DAILY;
     Route: 048
     Dates: start: 20140423, end: 20140423
  2. LANSOPRAZOLE [Suspect]
     Indication: DRUG ABUSE
     Dosage: 210 MILLIGRAM DAILY;
     Route: 048
     Dates: start: 20140423, end: 20140423
  3. SIMVASTATIN [Suspect]
     Indication: DRUG ABUSE
     Dosage: 280 MILLIGRAM DAILY;
     Route: 048
     Dates: start: 20140423, end: 20140423
  4. ZOLPIDEM TARTRATO [Suspect]
     Route: 048
     Dates: start: 20140423
  5. CITALOPRAM [Suspect]
     Indication: DRUG ABUSE
     Dosage: 560 MILLIGRAM DAILY;
     Route: 048
     Dates: start: 20140423, end: 20140423
  6. VASORETIC - 20 MG + 12.5 MG COMPRESSE - GMM FARMA S.R.L. [Suspect]
     Indication: DRUG ABUSE
     Dosage: 227.5 MILLIGRAM DAILY; 1 DOSAGE FORM = ENALAPRIL MALEATE 20 MG + HYDROCHLOROTHIAZIDE 12.5 MG
     Route: 048
     Dates: start: 20140423, end: 20140423
  7. ZEFFIX - 100 MG COMPRESSE FILMRIVESTITE - GLAXO GROUP LIMITED [Suspect]
     Indication: DRUG ABUSE
     Route: 048
     Dates: start: 20140423, end: 20140423
  8. DENIBAN - 50 MG COMPRESSE - SANOFI- AVENTIS S.P.A. [Suspect]
     Indication: DRUG ABUSE
     Dosage: 1000 MILLIGRAM DAILY;
     Route: 048
     Dates: start: 20140423, end: 20140423

REACTIONS (8)
  - Drug abuse [Recovered/Resolved]
  - Sopor [Recovered/Resolved]
  - Intentional self-injury [Recovered/Resolved]
  - Hypotension [Recovered/Resolved]
  - Metabolic acidosis [Recovered/Resolved]
  - Depressed level of consciousness [Recovered/Resolved]
  - Conduction disorder [Recovered/Resolved]
  - Depressed level of consciousness [None]
